FAERS Safety Report 12729012 (Version 3)
Quarter: 2016Q3

REPORT INFORMATION
  Report Type: Spontaneous
  Country: US (occurrence: US)
  Receive Date: 20160909
  Receipt Date: 20160916
  Transmission Date: 20161109
  Serious: Yes (Hospitalization)
  Sender: FDA-Public Use
  Company Number: US-HORIZON-RAV-0177-2016

PATIENT
  Age: 6 Year
  Sex: Male

DRUGS (4)
  1. ARGINASE [Concomitant]
  2. ZOFRAN [Concomitant]
     Active Substance: ONDANSETRON HYDROCHLORIDE
     Dosage: AS NEEDED
  3. TYLENOL/MOTRIN [Concomitant]
     Dosage: AS NEEDED
  4. RAVICTI [Suspect]
     Active Substance: GLYCEROL PHENYLBUTYRATE
     Indication: ARGININOSUCCINATE SYNTHETASE DEFICIENCY
     Dosage: 4.2 ML QID
     Dates: start: 20130419

REACTIONS (5)
  - Vomiting [Recovered/Resolved]
  - Lethargy [Recovered/Resolved]
  - Intensive care [Recovered/Resolved]
  - Hyperammonaemia [Recovered/Resolved]
  - Nasopharyngitis [Recovered/Resolved]
